FAERS Safety Report 7874520-1 (Version None)
Quarter: 2011Q4

REPORT INFORMATION
  Report Type: 
  Country: None (occurrence: None)
  Receive Date: 20111030
  Receipt Date: 20110522
  Transmission Date: 20120403
  Serious: No
  Sender: FDA-Public Use
  Company Number: US-AMGEN-USASP2011011558

PATIENT
  Age: 57 Year
  Sex: Female

DRUGS (2)
  1. ENBREL [Suspect]
     Indication: RHEUMATOID ARTHRITIS
     Dosage: 50 MG, QWK
     Dates: start: 20030401
  2. ENBREL [Suspect]
     Indication: SJOGREN'S SYNDROME
     Dosage: 50 MG, QWK
     Dates: start: 20030401

REACTIONS (11)
  - UPPER RESPIRATORY TRACT INFECTION [None]
  - HERPES ZOSTER [None]
  - MUSCULAR WEAKNESS [None]
  - DRY MOUTH [None]
  - DERMATITIS ALLERGIC [None]
  - RASH MACULO-PAPULAR [None]
  - SJOGREN'S SYNDROME [None]
  - PAIN IN EXTREMITY [None]
  - RASH [None]
  - DRY EYE [None]
  - INJECTION SITE PAIN [None]
